FAERS Safety Report 17592044 (Version 1)
Quarter: 2020Q1

REPORT INFORMATION
  Report Type: Spontaneous
  Country: IL (occurrence: IL)
  Receive Date: 20200327
  Receipt Date: 20200327
  Transmission Date: 20200409
  Serious: Yes (Other)
  Sender: FDA-Public Use
  Company Number: NVSC2020IL085632

PATIENT
  Sex: Female

DRUGS (1)
  1. EUCREAS [Suspect]
     Active Substance: METFORMIN HYDROCHLORIDE\VILDAGLIPTIN
     Indication: PRODUCT USED FOR UNKNOWN INDICATION
     Route: 065

REACTIONS (6)
  - Vaginal odour [Unknown]
  - Musculoskeletal stiffness [Unknown]
  - Urinary retention [Unknown]
  - Vaginal infection [Unknown]
  - Vulvovaginal burning sensation [Unknown]
  - Hepatic pain [Unknown]
